FAERS Safety Report 8581153-0 (Version None)
Quarter: 2012Q3

REPORT INFORMATION
  Report Type: 
  Country: None (occurrence: None)
  Receive Date: 20120809
  Receipt Date: 20120802
  Transmission Date: 20120928
  Serious: Yes (Hospitalization, Other)
  Sender: FDA-Public Use
  Company Number: US-COVIDIEN/TYCO HEALTHCARE/MALLINCKRODT-T201200628

PATIENT
  Age: 30 Year
  Sex: Female

DRUGS (2)
  1. METHADOSE [Suspect]
     Indication: SUBSTANCE ABUSE
     Dosage: 160 MG, QD
     Route: 048
  2. LISINOPRIL [Suspect]
     Indication: HYPERTENSION
     Dosage: UNK
     Dates: end: 20111201

REACTIONS (3)
  - PREMATURE DELIVERY [None]
  - AMNIOTIC FLUID VOLUME DECREASED [None]
  - MATERNAL EXPOSURE DURING PREGNANCY [None]
